FAERS Safety Report 17087846 (Version 1)
Quarter: 2019Q4

REPORT INFORMATION
  Report Type: Other
  Country: CA (occurrence: CA)
  Receive Date: 20191128
  Receipt Date: 20191128
  Transmission Date: 20200122
  Serious: Yes (Death, Other)
  Sender: FDA-Public Use
  Company Number: CA-PFIZER INC-2019504781

PATIENT

DRUGS (16)
  1. SULFAMETHOXAZOLE/TRIMETHOPRIM [Suspect]
     Active Substance: SULFAMETHOXAZOLE\TRIMETHOPRIM
     Indication: STENOTROPHOMONAS INFECTION
     Dosage: 5 MG/KG, 4X/DAY (1 EVERY 6 HOUR(S))
     Route: 064
  2. AMPICILLIN SODIUM/AMPICILLIN TRIHYDRATE [Suspect]
     Active Substance: AMPICILLIN
     Dosage: UNK
     Route: 064
  3. BETAMETHASON [BETAMETHASONE] [Suspect]
     Active Substance: BETAMETHASONE
     Dosage: UNK
     Route: 064
  4. ERYTHROMYCIN. [Suspect]
     Active Substance: ERYTHROMYCIN
     Dosage: UNK
     Route: 064
  5. VANCOMYCIN HCL [Suspect]
     Active Substance: VANCOMYCIN HYDROCHLORIDE
     Dosage: 15 MG, 1X/DAY
     Route: 064
  6. SULFAMETHOXAZOLE/TRIMETHOPRIM [Suspect]
     Active Substance: SULFAMETHOXAZOLE\TRIMETHOPRIM
     Dosage: 2.5 MG/KG, 4X/DAY (1 EVERY 6 HOUR(S))
     Route: 064
  7. LEVOFLOXACIN. [Suspect]
     Active Substance: LEVOFLOXACIN
     Dosage: 1 MG/KG, 2X/DAY  (1 EVERY 12 HOUR(S))
     Route: 064
  8. CEFOTAXIME [Suspect]
     Active Substance: CEFOTAXIME SODIUM
     Dosage: 50 MG/KG, 4X/DAY (1 EVERY 6 HOURS)
     Route: 064
  9. LEVOFLOXACIN. [Suspect]
     Active Substance: LEVOFLOXACIN
     Indication: STENOTROPHOMONAS INFECTION
     Dosage: 10 MG/KG, 2X/DAY (1 EVERY 12 HOUR(S))
     Route: 064
  10. AMPICILLIN SODIUM/AMPICILLIN TRIHYDRATE [Suspect]
     Active Substance: AMPICILLIN
     Dosage: 50 MG/KG, 2X/DAY (1 EVERY 12 HOUR(S)
     Route: 064
  11. SULFAMETHOXAZOLE/TRIMETHOPRIM [Suspect]
     Active Substance: SULFAMETHOXAZOLE\TRIMETHOPRIM
     Dosage: 2 MG/KG, 4X/DAY (1 EVERY 6 HOUR(S))
     Route: 064
  12. SULFAMETHOXAZOLE/TRIMETHOPRIM [Suspect]
     Active Substance: SULFAMETHOXAZOLE\TRIMETHOPRIM
     Dosage: 3 MG/KG, UNK
     Route: 064
  13. MEROPENEM. [Suspect]
     Active Substance: MEROPENEM
     Indication: RESPIRATORY TRACT INFECTION
     Dosage: 20 MG/KG, 2X/DAY (1 EVERY 12 HOUR(S)
     Route: 064
  14. CEFOTAXIME [Suspect]
     Active Substance: CEFOTAXIME SODIUM
     Indication: RENAL FAILURE
     Dosage: 50 MG/KG, 2X/DAY (1 EVERY 12 HOUR(S))
     Route: 064
  15. GENTAMICIN SULFATE. [Suspect]
     Active Substance: GENTAMICIN SULFATE
     Dosage: 5 MG/KG, UNK (1 EVERY 48 HOUR(S))
     Route: 064
  16. SULFAMETHOXAZOLE/TRIMETHOPRIM [Suspect]
     Active Substance: SULFAMETHOXAZOLE\TRIMETHOPRIM
     Dosage: 1 MG/KG, 2X/DAY (1 EVERY 12 HOUR(S))
     Route: 064

REACTIONS (10)
  - Hypotonia [Fatal]
  - Premature baby [Fatal]
  - Renal failure [Fatal]
  - Stenotrophomonas infection [Fatal]
  - Foetal exposure during pregnancy [Fatal]
  - Lethargy [Fatal]
  - Urine output decreased [Fatal]
  - Respiratory disorder [Fatal]
  - Sepsis [Fatal]
  - Umbilical erythema [Fatal]
